APPROVED DRUG PRODUCT: ACETAZOLAMIDE
Active Ingredient: ACETAZOLAMIDE
Strength: 125MG
Dosage Form/Route: TABLET;ORAL
Application: A213706 | Product #001
Applicant: TORRENT PHARMACEUTICALS LTD
Approved: Jan 26, 2024 | RLD: No | RS: No | Type: DISCN